FAERS Safety Report 11456051 (Version 3)
Quarter: 2015Q3

REPORT INFORMATION
  Report Type: Spontaneous
  Country: US (occurrence: None)
  Receive Date: 20150903
  Receipt Date: 20150925
  Transmission Date: 20151125
  Serious: Yes (Other)
  Sender: FDA-Public Use
  Company Number: US-MDT-ADR-2015-01697

PATIENT
  Age: 41 Year
  Sex: Male

DRUGS (2)
  1. BACLOFEN INTRATHECAL (300 MCG/ML) [Suspect]
     Active Substance: BACLOFEN
     Dosage: 139.37 MCG/DAY
  2. CLONIDINE. [Suspect]
     Active Substance: CLONIDINE
     Dosage: 92.91 MCG/DAY

REACTIONS (1)
  - Medical device site infection [None]
